FAERS Safety Report 8545640-3 (Version None)
Quarter: 2012Q3

REPORT INFORMATION
  Report Type: 
  Country: None (occurrence: None)
  Receive Date: 20120718
  Receipt Date: 20120718
  Transmission Date: 20120928
  Serious: Yes (Other)
  Sender: FDA-Public Use
  Company Number: None

PATIENT
  Age: 46 Year
  Sex: Female

DRUGS (1)
  1. QUETIAPINE [Suspect]
     Dosage: 1 TO 2 HS 2 WKS, END JUNE
     Dates: start: 20120601

REACTIONS (5)
  - CONDITION AGGRAVATED [None]
  - SOMNOLENCE [None]
  - RESTLESSNESS [None]
  - ANXIETY [None]
  - AKATHISIA [None]
